FAERS Safety Report 23803696 (Version 1)
Quarter: 2024Q2

REPORT INFORMATION
  Report Type: Spontaneous
  Country: US (occurrence: None)
  Receive Date: 20240430
  Receipt Date: 20240430
  Transmission Date: 20240715
  Serious: No
  Sender: FDA-Public Use
  Company Number: None

PATIENT
  Age: 77 Year
  Sex: Male
  Weight: 118 kg

DRUGS (1)
  1. KEYTRUDA [Suspect]
     Active Substance: PEMBROLIZUMAB
     Indication: Bladder cancer
     Dosage: OTHER FREQUENCY : EVERY 42 DAYS;?
     Dates: start: 20231101

REACTIONS (5)
  - Illness [None]
  - Hypotension [None]
  - Pneumonia [None]
  - Dyspnoea exertional [None]
  - Fatigue [None]

NARRATIVE: CASE EVENT DATE: 20240425
